FAERS Safety Report 4433635-0 (Version None)
Quarter: 2004Q3

REPORT INFORMATION
  Report Type: 
  Country: None (occurrence: None)
  Receive Date: 20040824
  Receipt Date: 20040812
  Transmission Date: 20050211
  Serious: Yes (Death)
  Sender: FDA-Public Use
  Company Number: S04-USA-05502-01

PATIENT
  Age: 16 Year
  Sex: Female

DRUGS (6)
  1. LEXAPRO [Suspect]
     Indication: DEPRESSION
     Dosage: 20 MG QD PO
     Route: 048
     Dates: start: 20031006, end: 20031109
  2. LEXAPRO [Suspect]
     Indication: DEPRESSION
     Dosage: 10 MG QD PO
     Route: 048
     Dates: start: 20030820, end: 20031005
  3. CELEXA [Suspect]
     Indication: DEPRESSION
     Dates: start: 20031109, end: 20031109
  4. CELEXA [Suspect]
     Indication: DEPRESSION
     Dosage: 40 MG QD PO
     Route: 048
     Dates: end: 20030819
  5. DARVOCET-N 100 [Suspect]
     Indication: ROAD TRAFFIC ACCIDENT
     Dates: start: 20031102, end: 20031109
  6. FLEXERIL [Concomitant]

REACTIONS (6)
  - COMPLETED SUICIDE [None]
  - DILATATION VENTRICULAR [None]
  - INJURY [None]
  - MULTIPLE DRUG OVERDOSE INTENTIONAL [None]
  - PULMONARY OEDEMA [None]
  - ROAD TRAFFIC ACCIDENT [None]
